FAERS Safety Report 7150002-X (Version None)
Quarter: 2010Q4

REPORT INFORMATION
  Report Type: 
  Country: None (occurrence: None)
  Receive Date: 20101210
  Receipt Date: 20101206
  Transmission Date: 20110411
  Serious: Yes (Hospitalization, Other)
  Sender: FDA-Public Use
  Company Number: BR-SHIRE-SPV1-2010-01877

PATIENT
  Age: 14 Year
  Sex: Male
  Weight: 32 kg

DRUGS (2)
  1. ELAPRASE [Suspect]
     Indication: MUCOPOLYSACCHARIDOSIS II
     Dosage: UNK
  2. TAZOCIN [Suspect]
     Indication: PNEUMONIA
     Dosage: UNK
     Route: 041
     Dates: start: 20101129

REACTIONS (2)
  - FUNGAL INFECTION [None]
  - RENAL FAILURE [None]
